FAERS Safety Report 9617692 (Version 1)
Quarter: 2013Q4

REPORT INFORMATION
  Report Type: Spontaneous
  Country: FR (occurrence: FR)
  Receive Date: 20131011
  Receipt Date: 20131011
  Transmission Date: 20140711
  Serious: Yes (Hospitalization)
  Sender: FDA-Public Use
  Company Number: FR-BIOGENIDEC-2013BI098337

PATIENT
  Age: 41 Year
  Sex: Female

DRUGS (1)
  1. AVONEX [Suspect]
     Indication: MULTIPLE SCLEROSIS
     Route: 030
     Dates: start: 2002, end: 201205

REACTIONS (3)
  - Malignant hypertension [Unknown]
  - Posterior reversible encephalopathy syndrome [Recovered/Resolved]
  - Retinopathy hypertensive [Unknown]
